FAERS Safety Report 8241509-2 (Version None)
Quarter: 2012Q1

REPORT INFORMATION
  Report Type: 
  Country: None (occurrence: None)
  Receive Date: 20120328
  Receipt Date: 20110923
  Transmission Date: 20120608
  Serious: Yes (Death)
  Sender: FDA-Public Use
  Company Number: US-COVIDIEN/TYCO HEALTHCARE/MALLINCKRODT-T201101858

PATIENT
  Age: 25 Year
  Sex: Male

DRUGS (2)
  1. BUTRANS [Concomitant]
     Dosage: UNK
     Route: 062
  2. METHADOSE [Suspect]
     Dosage: UNK

REACTIONS (1)
  - OVERDOSE [None]
